FAERS Safety Report 7664111-X (Version None)
Quarter: 2011Q3

REPORT INFORMATION
  Report Type: 
  Country: None (occurrence: None)
  Receive Date: 20110806
  Receipt Date: 20110111
  Transmission Date: 20111222
  Serious: No
  Sender: FDA-Public Use
  Company Number: US-ABBOTT-11P-163-0696490-00

PATIENT
  Sex: Female
  Weight: 90.8 kg

DRUGS (3)
  1. M.V.I. [Concomitant]
     Indication: PRODUCT USED FOR UNKNOWN INDICATION
  2. VIT D [Concomitant]
     Indication: PRODUCT USED FOR UNKNOWN INDICATION
  3. NIASPAN [Suspect]
     Indication: HYPERLIPIDAEMIA
     Dates: start: 20101228

REACTIONS (4)
  - ABDOMINAL PAIN UPPER [None]
  - THROMBOSIS [None]
  - POLYMENORRHOEA [None]
  - MENORRHAGIA [None]
